FAERS Safety Report 24736403 (Version 2)
Quarter: 2024Q4

REPORT INFORMATION
  Report Type: Spontaneous
  Country: US (occurrence: US)
  Receive Date: 20241216
  Receipt Date: 20241227
  Transmission Date: 20250115
  Serious: Yes (Other)
  Sender: MSN LABORATORIES PRIVATE LIMITED
  Company Number: US-MSNLABS-2024MSNLIT02715

PATIENT

DRUGS (9)
  1. LACOSAMIDE [Suspect]
     Active Substance: LACOSAMIDE
     Indication: New onset refractory status epilepticus
     Dosage: MAXIMUM DOSE OF 9 MG/KG/D OVER 72 HOURS
     Route: 065
  2. LACOSAMIDE [Suspect]
     Active Substance: LACOSAMIDE
     Dosage: LOADING 20 MG/KG/DOSE X 1 WITH INITIATION DOSE OF 1 MG/KG Q
     Route: 042
     Dates: start: 20211127, end: 20211203
  3. PHENOBARBITAL [Suspect]
     Active Substance: PHENOBARBITAL
     Indication: Seizure prophylaxis
     Dosage: SINGLE DOSE (20MG/KG/DOSE)
     Route: 042
  4. PHENOBARBITAL [Suspect]
     Active Substance: PHENOBARBITAL
     Dosage: 5MG/KG/DAY
     Route: 042
  5. FOSPHENYTOIN [Suspect]
     Active Substance: FOSPHENYTOIN
     Indication: Seizure prophylaxis
     Dosage: 20MG/KG/DOSE X 2 DOSES ON DOL 1 AND 2
     Route: 065
  6. MIDAZOLAM [Concomitant]
     Active Substance: MIDAZOLAM
     Dosage: INFUSION 90 UG/KG/MIN
     Route: 065
  7. VASOPRESSIN [Concomitant]
     Active Substance: VASOPRESSIN
     Indication: Product used for unknown indication
     Dosage: 1.6 MILLIUNITS/KG/MIN
     Route: 065
  8. NITRIC OXIDE [Concomitant]
     Active Substance: NITRIC OXIDE
     Dosage: 20 PARTS PER MILLION
  9. NITRIC OXIDE [Concomitant]
     Active Substance: NITRIC OXIDE

REACTIONS (1)
  - Cardiac dysfunction [Recovered/Resolved]
